FAERS Safety Report 12658503 (Version 2)
Quarter: 2016Q3

REPORT INFORMATION
  Report Type: Report from Study
  Country: GR (occurrence: GR)
  Receive Date: 20160817
  Receipt Date: 20160908
  Transmission Date: 20161109
  Serious: Yes (Hospitalization)
  Sender: FDA-Public Use
  Company Number: PHHO2016GR011796

PATIENT
  Age: 38 Year
  Sex: Male
  Weight: 69 kg

DRUGS (1)
  1. ICL670A [Suspect]
     Active Substance: DEFERASIROX
     Indication: THALASSAEMIA
     Dosage: 1375 MG, QD (PER 24 HOURS)
     Route: 048
     Dates: start: 20131017, end: 20160809

REACTIONS (2)
  - Diarrhoea [Recovered/Resolved]
  - Dyspnoea [Recovered/Resolved]

NARRATIVE: CASE EVENT DATE: 20160806
